FAERS Safety Report 4716381-5 (Version None)
Quarter: 2005Q3

REPORT INFORMATION
  Report Type: 
  Country: None (occurrence: None)
  Receive Date: 20050713
  Receipt Date: 20050629
  Transmission Date: 20060218
  Serious: Yes (Hospitalization)
  Sender: FDA-Public Use
  Company Number: WAES 0506USA04366

PATIENT
  Age: 56 Year
  Sex: Female

DRUGS (6)
  1. DECADRON [Suspect]
     Dosage: 4 MG/BID/PO
     Route: 048
     Dates: start: 20050510
  2. PRE-THERAPY [Suspect]
     Indication: GLIOBLASTOMA MULTIFORME
  3. DARVOCET-N 100 [Concomitant]
  4. SENOKOT-S TABLETS [Concomitant]
  5. LEVETIRACETAM [Concomitant]
  6. OMEPRAZOLE [Concomitant]

REACTIONS (2)
  - HYPERGLYCAEMIA [None]
  - SYNCOPE [None]
